FAERS Safety Report 18277937 (Version 2)
Quarter: 2023Q2

REPORT INFORMATION
  Report Type: Spontaneous
  Country: US (occurrence: US)
  Receive Date: 20200917
  Receipt Date: 20230630
  Transmission Date: 20230721
  Serious: No
  Sender: FDA-Public Use
  Company Number: US-GW PHARMA-202009USGW03103

PATIENT
  Sex: Male

DRUGS (4)
  1. EPIDIOLEX [Suspect]
     Active Substance: CANNABIDIOL
     Indication: Partial seizures
     Dosage: 200 MILLIGRAM, BID
     Route: 048
     Dates: start: 20200813, end: 20200819
  2. EPIDIOLEX [Suspect]
     Active Substance: CANNABIDIOL
     Indication: Epilepsy
     Dosage: 400 MILLIGRAM, BID
     Route: 048
     Dates: start: 20200820
  3. EPIDIOLEX [Suspect]
     Active Substance: CANNABIDIOL
     Indication: Idiopathic generalised epilepsy
     Dosage: 3 MILLILITER
     Route: 048
     Dates: start: 20200811
  4. EPIDIOLEX [Suspect]
     Active Substance: CANNABIDIOL
     Indication: Status epilepticus

REACTIONS (6)
  - Seizure [Unknown]
  - Dysarthria [Unknown]
  - Decreased appetite [Unknown]
  - Product administration interrupted [Unknown]
  - Product use in unapproved indication [Unknown]
  - Product distribution issue [Unknown]

NARRATIVE: CASE EVENT DATE: 20200101
